FAERS Safety Report 21206740 (Version 3)
Quarter: 2022Q4

REPORT INFORMATION
  Report Type: Report from Study
  Country: US (occurrence: US)
  Receive Date: 20220812
  Receipt Date: 20221206
  Transmission Date: 20230113
  Serious: Yes (Hospitalization)
  Sender: FDA-Public Use
  Company Number: US-ARGENX-2022-ARGX-US001470

PATIENT

DRUGS (2)
  1. VYVGART [Suspect]
     Active Substance: EFGARTIGIMOD ALFA-FCAB
     Indication: Myasthenia gravis
     Dosage: 770 MG 1/WEEK
     Dates: start: 20220601
  2. VYVGART [Suspect]
     Active Substance: EFGARTIGIMOD ALFA-FCAB
     Dosage: 660 MG
     Route: 042
     Dates: start: 202208

REACTIONS (3)
  - Myasthenia gravis crisis [Unknown]
  - Weight decreased [Unknown]
  - Adverse event [Unknown]
